FAERS Safety Report 21041395 (Version 3)
Quarter: 2022Q3

REPORT INFORMATION
  Report Type: Spontaneous
  Country: JP (occurrence: JP)
  Receive Date: 20220705
  Receipt Date: 20220712
  Transmission Date: 20221027
  Serious: Yes (Death)
  Sender: FDA-Public Use
  Company Number: JP-JNJFOC-20220700249

PATIENT
  Age: 77 Year
  Sex: Male

DRUGS (6)
  1. ZYTIGA [Suspect]
     Active Substance: ABIRATERONE ACETATE
     Indication: Prostate cancer metastatic
     Dosage: DOSE UNKNOWN
     Route: 048
     Dates: end: 202101
  2. DENOSUMAB [Concomitant]
     Active Substance: DENOSUMAB
     Indication: Prostate cancer metastatic
     Dosage: DOSE UNKNOWN
     Route: 065
     Dates: end: 202109
  3. DEGARELIX ACETATE [Concomitant]
     Active Substance: DEGARELIX ACETATE
     Indication: Prostate cancer metastatic
     Dosage: DOSE UNKNOWN
     Route: 065
     Dates: end: 202109
  4. DOCETAXEL [Concomitant]
     Active Substance: DOCETAXEL
     Indication: Prostate cancer metastatic
     Dosage: DOSE UNKNOWN
     Route: 065
     Dates: start: 202101, end: 202104
  5. CABAZITAXEL [Concomitant]
     Active Substance: CABAZITAXEL
     Indication: Prostate cancer metastatic
     Dosage: DOSE UNKNOWN
     Route: 065
     Dates: start: 202104, end: 202106
  6. RADIUM(223RA) CHLORIDE [Concomitant]
     Indication: Prostate cancer metastatic
     Dosage: DOSE UNKNOWN
     Route: 065
     Dates: start: 202107, end: 202109

REACTIONS (1)
  - Prostate cancer [Fatal]
